FAERS Safety Report 16458290 (Version 3)
Quarter: 2019Q2

REPORT INFORMATION
  Report Type: Report from Study
  Country: PL (occurrence: PL)
  Receive Date: 20190620
  Receipt Date: 20190628
  Transmission Date: 20190711
  Serious: Yes (Hospitalization)
  Sender: FDA-Public Use
  Company Number: PL-GLAXOSMITHKLINE-PL2019GSK106505

PATIENT
  Age: 46 Year
  Sex: Female
  Weight: 69.7 kg

DRUGS (3)
  1. METYPRED [Concomitant]
     Active Substance: METHYLPREDNISOLONE
     Dosage: 2 MG, QOD
     Route: 048
     Dates: start: 20190301
  2. MEPOLIZUMAB [Suspect]
     Active Substance: MEPOLIZUMAB
     Indication: HYPEREOSINOPHILIC SYNDROME
     Dosage: UNK
  3. METYPRED [Concomitant]
     Active Substance: METHYLPREDNISOLONE
     Indication: HYPEREOSINOPHILIC SYNDROME
     Dosage: 4 MG, QOD
     Route: 048
     Dates: start: 20190301

REACTIONS (1)
  - Sinusitis fungal [Recovering/Resolving]

NARRATIVE: CASE EVENT DATE: 20190610
